FAERS Safety Report 18218800 (Version 1)
Quarter: 2020Q3

REPORT INFORMATION
  Report Type: Spontaneous
  Country: US (occurrence: US)
  Receive Date: 20200828
  Receipt Date: 20200828
  Transmission Date: 20201103
  Serious: Yes (Hospitalization)
  Sender: FDA-Public Use
  Company Number: None

PATIENT
  Age: 49 Year
  Sex: Female

DRUGS (14)
  1. AIMOVIG [Suspect]
     Active Substance: ERENUMAB-AOOE
     Indication: MIGRAINE WITHOUT AURA
     Route: 058
     Dates: start: 20200302
  2. ALPRRAZOLAM [Concomitant]
     Active Substance: ALPRAZOLAM
  3. SERTRALINE [Concomitant]
     Active Substance: SERTRALINE HYDROCHLORIDE
  4. CYCLOBENZAPRINE. [Concomitant]
     Active Substance: CYCLOBENZAPRINE
  5. MECLINE [Concomitant]
  6. AIMOVIG [Suspect]
     Active Substance: ERENUMAB-AOOE
     Indication: CHRONIC PAROXYSMAL HEMICRANIA
     Route: 058
     Dates: start: 20200302
  7. PROMETHAZINE [Concomitant]
     Active Substance: PROMETHAZINE HYDROCHLORIDE
  8. HYDROCO/APAP [Concomitant]
     Active Substance: ACETAMINOPHEN\HYDROCODONE
  9. LEVOTHYROXINE. [Concomitant]
     Active Substance: LEVOTHYROXINE
  10. TIZANIDINE. [Concomitant]
     Active Substance: TIZANIDINE
  11. DIAZEPAM. [Concomitant]
     Active Substance: DIAZEPAM
  12. QUETIAPINE. [Concomitant]
     Active Substance: QUETIAPINE
  13. TRAMADOL. [Concomitant]
     Active Substance: TRAMADOL
  14. ATORVASTATIN [Concomitant]
     Active Substance: ATORVASTATIN

REACTIONS (1)
  - Hospitalisation [None]

NARRATIVE: CASE EVENT DATE: 202008
